FAERS Safety Report 12203944 (Version 5)
Quarter: 2017Q2

REPORT INFORMATION
  Report Type: Report from Study
  Country: FR (occurrence: FR)
  Receive Date: 20160323
  Receipt Date: 20170526
  Transmission Date: 20170830
  Serious: Yes (Hospitalization, Other)
  Sender: FDA-Public Use
  Company Number: PHHO2015FR020342

PATIENT
  Age: 69 Year
  Sex: Female
  Weight: 58 kg

DRUGS (8)
  1. OXYNORMORO [Concomitant]
     Active Substance: OXYCODONE
  2. IMOVANE [Concomitant]
     Active Substance: ZOPICLONE
  3. OROZAMUDOL [Concomitant]
     Active Substance: TRAMADOL
  4. TRAMETINIB [Suspect]
     Active Substance: TRAMETINIB
     Indication: METASTATIC MALIGNANT MELANOMA
     Dosage: 2 MG, QD
     Route: 048
     Dates: start: 20151009, end: 20151117
  5. OXYCONTIN [Concomitant]
     Active Substance: OXYCODONE HYDROCHLORIDE
  6. LYRICA [Concomitant]
     Active Substance: PREGABALIN
  7. CIPROFLOXACINE [Concomitant]
     Active Substance: CIPROFLOXACIN
  8. DABRAFENIB [Suspect]
     Active Substance: DABRAFENIB
     Indication: METASTATIC MALIGNANT MELANOMA
     Dosage: 150 MG, BID
     Route: 048
     Dates: start: 20150825

REACTIONS (2)
  - Malignant neoplasm progression [Unknown]
  - Quadriparesis [Recovered/Resolved]

NARRATIVE: CASE EVENT DATE: 20151117
